FAERS Safety Report 6971268-2 (Version None)
Quarter: 2010Q3

REPORT INFORMATION
  Report Type: 
  Country: None (occurrence: None)
  Receive Date: 20100908
  Receipt Date: 20100902
  Transmission Date: 20110219
  Serious: Yes (Other)
  Sender: FDA-Public Use
  Company Number: US-BRISTOL-MYERS SQUIBB COMPANY-15271059

PATIENT

DRUGS (1)
  1. COUMADIN [Suspect]

REACTIONS (1)
  - THROMBOSIS [None]
